FAERS Safety Report 21067984 (Version 1)
Quarter: 2022Q3

REPORT INFORMATION
  Report Type: Spontaneous
  Country: US (occurrence: US)
  Receive Date: 20220712
  Receipt Date: 20220712
  Transmission Date: 20221026
  Serious: No
  Sender: FDA-Public Use
  Company Number: US-CELGENE-USA-20210307895

PATIENT
  Age: 35 Year
  Sex: Male

DRUGS (4)
  1. ZEPOSIA [Suspect]
     Active Substance: OZANIMOD HYDROCHLORIDE
     Indication: Multiple sclerosis
     Dosage: FREQUENCY TEXT: 0.23MG X4 DAYS, 0.046MG X3DAYS?STARTER PACK
     Route: 048
     Dates: start: 20210312, end: 20210318
  2. ZEPOSIA [Suspect]
     Active Substance: OZANIMOD HYDROCHLORIDE
     Dosage: .92 MILLIGRAM
     Route: 048
     Dates: start: 20210319
  3. ZEPOSIA [Suspect]
     Active Substance: OZANIMOD HYDROCHLORIDE
     Dosage: FREQUENCY-DAILY
     Route: 048
     Dates: start: 20220228
  4. AMITRIPTYLINE [Concomitant]
     Active Substance: AMITRIPTYLINE
     Indication: Product used for unknown indication
     Dosage: FREQUENCY-DAILY
     Route: 065
     Dates: start: 2019

REACTIONS (1)
  - Depression [Recovered/Resolved]
